FAERS Safety Report 15081104 (Version 1)
Quarter: 2018Q2

REPORT INFORMATION
  Report Type: Spontaneous
  Country: US (occurrence: US)
  Receive Date: 20180628
  Receipt Date: 20180628
  Transmission Date: 20180711
  Serious: Yes (Hospitalization)
  Sender: FDA-Public Use
  Company Number: US-ROCHE-2144442

PATIENT
  Age: 65 Year
  Sex: Male
  Weight: 89.44 kg

DRUGS (2)
  1. ERIVEDGE [Suspect]
     Active Substance: VISMODEGIB
     Indication: BASAL CELL CARCINOMA
     Route: 065
     Dates: start: 20160611, end: 201607
  2. ERIVEDGE [Suspect]
     Active Substance: VISMODEGIB
     Dosage: FOR TWO WEEKS ;ONGOING: NO
     Route: 065
     Dates: start: 2016, end: 201609

REACTIONS (3)
  - Atrial fibrillation [Not Recovered/Not Resolved]
  - Renal disorder [Not Recovered/Not Resolved]
  - Liver disorder [Not Recovered/Not Resolved]

NARRATIVE: CASE EVENT DATE: 201609
